FAERS Safety Report 4596652-6 (Version None)
Quarter: 2005Q1

REPORT INFORMATION
  Report Type: 
  Country: None (occurrence: None)
  Receive Date: 20050228
  Receipt Date: 20050215
  Transmission Date: 20050727
  Serious: Yes (Hospitalization, Other)
  Sender: FDA-Public Use
  Company Number: 2004113970

PATIENT
  Age: 63 Year
  Sex: Male
  Weight: 72.5755 kg

DRUGS (3)
  1. BEXTRA [Suspect]
     Indication: MIGRAINE
     Dosage: 40 MG (20 MG, 2 IN 1 D), ORAL
     Route: 048
     Dates: start: 20020101
  2. ESOMEPRAZOLE (ESOMEPRAZOLE) [Concomitant]
  3. MISOPROSTOL [Concomitant]

REACTIONS (2)
  - CORONARY ARTERY OCCLUSION [None]
  - FATIGUE [None]
